FAERS Safety Report 8880671 (Version 1)
Quarter: 2012Q4

REPORT INFORMATION
  Report Type: 
  Country: US (occurrence: US)
  Receive Date: 20121101
  Receipt Date: 20121101
  Transmission Date: 20130627
  Serious: No
  Sender: FDA-Public Use
  Company Number: US-ASTRAZENECA-2012SE81739

PATIENT
  Age: 47 Year
  Sex: Female

DRUGS (3)
  1. NEXIUM [Suspect]
     Route: 048
  2. TUMS [Concomitant]
  3. PROTONIX [Concomitant]

REACTIONS (5)
  - Burning sensation [Unknown]
  - Chest discomfort [Unknown]
  - Foaming at mouth [Unknown]
  - Eructation [Unknown]
  - Drug dose omission [Unknown]
